FAERS Safety Report 22627207 (Version 2)
Quarter: 2023Q2

REPORT INFORMATION
  Report Type: Spontaneous
  Country: GB (occurrence: None)
  Receive Date: 20230622
  Receipt Date: 20230626
  Transmission Date: 20230721
  Serious: Yes (Hospitalization)
  Sender: FDA-Public Use
  Company Number: GB-ROCHE-3372908

PATIENT
  Sex: Female

DRUGS (1)
  1. PHESGO [Suspect]
     Active Substance: HYALURONIDASE-ZZXF\PERTUZUMAB\TRASTUZUMAB
     Indication: Breast cancer
     Dosage: STRENGTH 600MG/600MG. DOSE: 600MG/600MG
     Route: 058
     Dates: start: 20191101

REACTIONS (2)
  - Pain [Recovering/Resolving]
  - Metastases to bone [Not Recovered/Not Resolved]
